FAERS Safety Report 8130985-1 (Version None)
Quarter: 2012Q1

REPORT INFORMATION
  Report Type: 
  Country: None (occurrence: None)
  Receive Date: 20120209
  Receipt Date: 20120209
  Transmission Date: 20120608
  Serious: Yes (Other)
  Sender: FDA-Public Use
  Company Number: None

PATIENT
  Sex: Female
  Weight: 96.1626 kg

DRUGS (1)
  1. CAMRESE 0.15 - 0.03 - 0.01 MG TAB [Suspect]
     Indication: CONTRACEPTION
     Dosage: 0.15 -0.03 - 0.01 1 TIME DAILY ORAL
     Route: 048

REACTIONS (1)
  - THROMBOSIS [None]
